FAERS Safety Report 20769247 (Version 1)
Quarter: 2022Q2

REPORT INFORMATION
  Report Type: Spontaneous
  Country: FR (occurrence: FR)
  Receive Date: 20220429
  Receipt Date: 20220429
  Transmission Date: 20220721
  Serious: Yes (Other)
  Sender: FDA-Public Use
  Company Number: FR-AMGEN-FRASP2022070227

PATIENT

DRUGS (1)
  1. CINACALCET HYDROCHLORIDE [Suspect]
     Active Substance: CINACALCET HYDROCHLORIDE
     Indication: Hyperparathyroidism primary
     Dosage: UNK
     Route: 065

REACTIONS (6)
  - Calculus urinary [Unknown]
  - Pancreatitis [Unknown]
  - Hyperparathyroidism primary [Unknown]
  - Therapy non-responder [Unknown]
  - Bone demineralisation [Unknown]
  - Hypercalcaemia [Unknown]
